FAERS Safety Report 23133523 (Version 1)
Quarter: 2023Q4

REPORT INFORMATION
  Report Type: Spontaneous
  Country: US (occurrence: None)
  Receive Date: 20231030
  Receipt Date: 20231030
  Transmission Date: 20240110
  Serious: No
  Sender: FDA-Public Use
  Company Number: None

PATIENT
  Sex: Female

DRUGS (4)
  1. STELARA [Suspect]
     Active Substance: USTEKINUMAB
     Indication: Crohn^s disease
     Route: 058
     Dates: start: 20200229
  2. AMBIENT TAB [Concomitant]
  3. HYDROCO/APAP TAB 10-325MG [Concomitant]
  4. MULTI-VITAMIN TAB [Concomitant]

REACTIONS (2)
  - Crohn^s disease [None]
  - Loss of personal independence in daily activities [None]
